FAERS Safety Report 4721504-8 (Version None)
Quarter: 2005Q3

REPORT INFORMATION
  Report Type: 
  Country: None (occurrence: None)
  Receive Date: 20050721
  Receipt Date: 20041021
  Transmission Date: 20060218
  Serious: No
  Sender: FDA-Public Use
  Company Number: US-BRISTOL-MYERS SQUIBB COMPANY-12740098

PATIENT
  Age: 70 Year
  Sex: Female
  Weight: 63 kg

DRUGS (7)
  1. COUMADIN [Suspect]
     Indication: ATRIAL FIBRILLATION
     Dosage: 7.5 MG QOD AND 6 MG OTHER DAYS, INCREASED ON 10-1-04 TO 7.5 MG 4 X/WK + 6 MG 3 X/WK.
     Route: 048
     Dates: start: 20030101
  2. COUMADIN [Suspect]
     Indication: CARDIAC VALVE DISEASE
     Dosage: 7.5 MG QOD AND 6 MG OTHER DAYS, INCREASED ON 10-1-04 TO 7.5 MG 4 X/WK + 6 MG 3 X/WK.
     Route: 048
     Dates: start: 20030101
  3. NORVASC [Concomitant]
     Dosage: TAKEN DAILY FOR YEARS
  4. TOPROL-XL [Concomitant]
     Dosage: TAKEN DAILY FOR YEARS
  5. ALDACTONE [Concomitant]
     Dosage: TAKEN DAILY FOR YEARS
  6. PRANDIN [Concomitant]
     Dosage: TAKEN DAILY FOR YEARS
  7. LANOXIN [Concomitant]
     Dosage: TAKEN DAILY FOR YEARS

REACTIONS (1)
  - BLOOD GLUCOSE INCREASED [None]
